FAERS Safety Report 8974240 (Version 1)
Quarter: 2012Q4

REPORT INFORMATION
  Report Type: Spontaneous
  Country: US (occurrence: None)
  Receive Date: 20121217
  Receipt Date: 20121217
  Transmission Date: 20130627
  Serious: Yes (Life-Threatening)
  Sender: FDA-Public Use
  Company Number: None

PATIENT
  Age: 62 Year
  Sex: Female
  Weight: 78.02 kg

DRUGS (1)
  1. LYRICA [Suspect]
     Indication: NEUROPATHIC PAIN
     Dates: start: 201202, end: 201209

REACTIONS (6)
  - Fluid retention [None]
  - Haemoglobin increased [None]
  - Hypoxia [None]
  - Weight increased [None]
  - Pain [None]
  - Polycythaemia vera [None]
